FAERS Safety Report 6906786-6 (Version None)
Quarter: 2010Q3

REPORT INFORMATION
  Report Type: 
  Country: None (occurrence: None)
  Receive Date: 20100804
  Receipt Date: 20100722
  Transmission Date: 20110219
  Serious: Yes (Hospitalization, Other)
  Sender: FDA-Public Use
  Company Number: TR-ELI_LILLY_AND_COMPANY-TR201006000961

PATIENT
  Weight: 3.68 kg

DRUGS (4)
  1. HUMULIN N [Suspect]
     Dosage: 10 IU, DAILY (1/D) AT NIGHT
     Route: 064
     Dates: start: 20100329, end: 20100414
  2. HUMULIN R [Suspect]
     Route: 064
     Dates: start: 20100329, end: 20100414
  3. HUMULIN R [Suspect]
     Dosage: 12 IU, DAILY (1/D), AT NOON
     Route: 064
     Dates: start: 20100329, end: 20100414
  4. HUMULIN R [Suspect]
     Dosage: 10 IU, EACH EVENING
     Route: 064
     Dates: start: 20100329, end: 20100414

REACTIONS (2)
  - DRUG EXPOSURE DURING PREGNANCY [None]
  - DYSPNOEA [None]
